FAERS Safety Report 4517356-1 (Version None)
Quarter: 2004Q4

REPORT INFORMATION
  Report Type: 
  Country: None (occurrence: None)
  Receive Date: 20041029
  Receipt Date: 20040823
  Transmission Date: 20050328
  Serious: Yes (Hospitalization)
  Sender: FDA-Public Use
  Company Number: 2004-116577-NL

PATIENT
  Age: 30 Year
  Sex: Female
  Weight: 72 kg

DRUGS (1)
  1. NUVARING [Suspect]
     Dosage: DF DAILY VAGINAL
     Route: 067
     Dates: start: 20010101

REACTIONS (1)
  - UNINTENDED PREGNANCY [None]
